FAERS Safety Report 4829612-8 (Version None)
Quarter: 2005Q4

REPORT INFORMATION
  Report Type: 
  Country: None (occurrence: None)
  Receive Date: 20051027
  Receipt Date: 20041214
  Transmission Date: 20060501
  Serious: Yes (Hospitalization)
  Sender: FDA-Public Use
  Company Number: 200412821US

PATIENT
  Age: 48 Year
  Sex: Female

DRUGS (7)
  1. ARAVA [Suspect]
     Indication: RHEUMATOID ARTHRITIS
     Dosage: 100 MG QD PO
     Route: 048
     Dates: start: 20000721, end: 20000723
  2. ARAVA [Suspect]
     Indication: RHEUMATOID ARTHRITIS
     Dosage: 20 MG QD PO
     Route: 048
     Dates: start: 20000724, end: 20000729
  3. ETODOLAC (LODINE XL) [Concomitant]
  4. PREVACID [Concomitant]
  5. SYNTHROID [Concomitant]
  6. NAPROXEN [Concomitant]
  7. MISOPROSTOL (CYTOTEC) [Concomitant]

REACTIONS (28)
  - ALOPECIA [None]
  - APHTHOUS STOMATITIS [None]
  - ARTHRALGIA [None]
  - BACTERIA URINE IDENTIFIED [None]
  - BLOOD ALBUMIN DECREASED [None]
  - CHILLS [None]
  - DERMATITIS EXFOLIATIVE [None]
  - EAR PAIN [None]
  - EPIGASTRIC DISCOMFORT [None]
  - ERYTHEMA MULTIFORME [None]
  - EYE SWELLING [None]
  - GASTROINTESTINAL MUCOSAL DISORDER [None]
  - MENSTRUATION IRREGULAR [None]
  - NAUSEA [None]
  - ORAL INTAKE REDUCED [None]
  - PARAESTHESIA [None]
  - PHARYNGOLARYNGEAL PAIN [None]
  - PROTEINURIA [None]
  - PRURITUS [None]
  - PYREXIA [None]
  - RASH ERYTHEMATOUS [None]
  - RECTAL HAEMORRHAGE [None]
  - SKIN EXFOLIATION [None]
  - SKIN LESION [None]
  - SMEAR CERVIX ABNORMAL [None]
  - SWELLING FACE [None]
  - VAGINAL DISCHARGE [None]
  - VOMITING [None]
